FAERS Safety Report 8310128-1 (Version None)
Quarter: 2012Q2

REPORT INFORMATION
  Report Type: 
  Country: None (occurrence: None)
  Receive Date: 20120425
  Receipt Date: 20120419
  Transmission Date: 20120825
  Serious: Yes (Other)
  Sender: FDA-Public Use
  Company Number: US-PFIZER INC-2008023824

PATIENT
  Sex: Female
  Weight: 68.027 kg

DRUGS (7)
  1. CLONAZEPAM [Concomitant]
  2. LYRICA [Suspect]
     Dosage: 75 MG, DAILY
     Dates: start: 20080101, end: 20080401
  3. EFFEXOR [Concomitant]
     Indication: DEPRESSION
     Dosage: 150MG AT ONE TIME; 75MG AT ANOTHER TIME
  4. LYRICA [Suspect]
     Indication: FIBROMYALGIA
     Dosage: 150 MG, 2X/DAY
     Route: 048
     Dates: start: 20080101, end: 20080101
  5. LOVASTATIN [Concomitant]
     Indication: BLOOD CHOLESTEROL INCREASED
     Dosage: LESS THAN 25 MG DAILY AT NIGHT
  6. OMEPRAZOLE [Concomitant]
  7. SIMVASTATIN [Concomitant]
     Indication: BLOOD CHOLESTEROL ABNORMAL

REACTIONS (6)
  - DERMATITIS ALLERGIC [None]
  - PAIN [None]
  - WEIGHT INCREASED [None]
  - HEADACHE [None]
  - DRUG INEFFECTIVE [None]
  - THYROID DISORDER [None]
